FAERS Safety Report 13978441 (Version 4)
Quarter: 2020Q1

REPORT INFORMATION
  Report Type: Spontaneous
  Country: US (occurrence: US)
  Receive Date: 20170915
  Receipt Date: 20200203
  Transmission Date: 20200409
  Serious: Yes (Death)
  Sender: FDA-Public Use
  Company Number: US-ACTELION-A-NJ2017-159648

PATIENT
  Age: 81 Year
  Sex: Female

DRUGS (20)
  1. OPSUMIT [Suspect]
     Active Substance: MACITENTAN
     Indication: PULMONARY ARTERIAL HYPERTENSION
     Dosage: 10 MG, QD
     Route: 048
     Dates: start: 20170719, end: 20190320
  2. METHOTREXATE. [Concomitant]
     Active Substance: METHOTREXATE
  3. DORZOLOMIDE HYDROCHLORIDE [Concomitant]
  4. ONDANSETRONE HIKMA [Concomitant]
     Active Substance: ONDANSETRON
  5. GELNIQUE [Concomitant]
     Active Substance: OXYBUTYNIN
  6. SYMBICORT [Concomitant]
     Active Substance: BUDESONIDE\FORMOTEROL FUMARATE DIHYDRATE
  7. MUCINEX [Concomitant]
     Active Substance: GUAIFENESIN
  8. IRON [Concomitant]
     Active Substance: IRON
     Dosage: 500 MG, UNK
  9. AMLODIPINE BESYLATE. [Concomitant]
     Active Substance: AMLODIPINE BESYLATE
  10. OMEPRAZOLE. [Concomitant]
     Active Substance: OMEPRAZOLE
  11. POTASSIUM [Concomitant]
     Active Substance: POTASSIUM
  12. SUPREP BOWEL PREP [Concomitant]
     Active Substance: MAGNESIUM SULFATE\POTASSIUM SULFATE\SODIUM SULFATE
  13. FOLIC ACID. [Concomitant]
     Active Substance: FOLIC ACID
  14. CLARITIN [Concomitant]
     Active Substance: LORATADINE
  15. LEVOTHYROXINE SODIUM. [Concomitant]
     Active Substance: LEVOTHYROXINE SODIUM
  16. DOXYCYCLINE HYCLATE. [Concomitant]
     Active Substance: DOXYCYCLINE HYCLATE
  17. HYDROCODONE/ACETAMINOPHEN [Concomitant]
     Active Substance: ACETAMINOPHEN\HYDROCODONE
  18. SPIRONOLACTONE. [Concomitant]
     Active Substance: SPIRONOLACTONE
  19. ALDACTONE [Concomitant]
     Active Substance: SPIRONOLACTONE
  20. NEXIUM [Concomitant]
     Active Substance: ESOMEPRAZOLE MAGNESIUM

REACTIONS (2)
  - Arthritis [Unknown]
  - Death [Fatal]

NARRATIVE: CASE EVENT DATE: 20190320
